FAERS Safety Report 8775452 (Version 1)
Quarter: 2012Q4

REPORT INFORMATION
  Report Type: 
  Country: US (occurrence: US)
  Receive Date: 20120910
  Receipt Date: 20120910
  Transmission Date: 20130627
  Serious: No
  Sender: FDA-Public Use
  Company Number: US-009507513-1208USA011840

PATIENT

DRUGS (6)
  1. VICTRELIS [Suspect]
     Dosage: 4 DF, tid (every 7-9 hours with food)
     Route: 048
  2. PEG-INTRON [Suspect]
     Dosage: UNK
     Route: 058
  3. REBETOL [Suspect]
     Dosage: UNK
     Route: 048
  4. DIOVAN [Concomitant]
     Dosage: UNK
     Route: 048
  5. PROCRIT [Concomitant]
     Dosage: 40000/ML
  6. HYDROCHLOROT [Concomitant]
     Dosage: UNK
     Route: 048

REACTIONS (1)
  - Anaemia [Unknown]
